FAERS Safety Report 8565012-5 (Version None)
Quarter: 2012Q3

REPORT INFORMATION
  Report Type: 
  Country: None (occurrence: None)
  Receive Date: 20120724
  Receipt Date: 20120713
  Transmission Date: 20120928
  Serious: Yes (Hospitalization, Other)
  Sender: FDA-Public Use
  Company Number: ACO_31097_2012

PATIENT
  Age: 85 Year
  Sex: Female
  Weight: 63.5 kg

DRUGS (3)
  1. AMPYRA [Suspect]
     Indication: BALANCE DISORDER
     Dosage: 10 MG, BID, ORAL
     Route: 048
     Dates: start: 20110601, end: 20110701
  2. ANTIHYPERTENSIVES [Concomitant]
  3. ALL OTHER THERAPEUTIC PRODUCTS [Concomitant]

REACTIONS (4)
  - CONFUSIONAL STATE [None]
  - CONVULSION [None]
  - AMNESIA [None]
  - URINARY TRACT INFECTION [None]
